FAERS Safety Report 7608406-4 (Version None)
Quarter: 2011Q3

REPORT INFORMATION
  Report Type: 
  Country: None (occurrence: None)
  Receive Date: 20110713
  Receipt Date: 20110713
  Transmission Date: 20111222
  Serious: No
  Sender: FDA-Public Use
  Company Number: None

PATIENT
  Sex: Male

DRUGS (1)
  1. LOSARTAN POTASSIUM TAB  50MG TEVA [Suspect]
     Dosage: 50MG QD PO
     Route: 048
     Dates: start: 20110620, end: 20110711

REACTIONS (2)
  - CARDIAC DISORDER [None]
  - DIZZINESS [None]
